FAERS Safety Report 6309755-2 (Version None)
Quarter: 2009Q3

REPORT INFORMATION
  Report Type: 
  Country: None (occurrence: None)
  Receive Date: 20090814
  Receipt Date: 20090804
  Transmission Date: 20100115
  Serious: Yes (Hospitalization, Other)
  Sender: FDA-Public Use
  Company Number: DE-ELI_LILLY_AND_COMPANY-DE200906006229

PATIENT
  Age: 16 Year
  Sex: Male
  Weight: 95 kg

DRUGS (2)
  1. STRATTERA [Suspect]
     Indication: ATTENTION DEFICIT/HYPERACTIVITY DISORDER
     Dosage: 60 MG, DAILY (1/D)
     Route: 048
     Dates: start: 20050101, end: 20081201
  2. BETA BLOCKING AGENTS [Concomitant]
     Indication: HYPERTENSION
     Dosage: UNK, UNKNOWN
     Route: 065

REACTIONS (10)
  - AGGRESSION [None]
  - DELINQUENCY [None]
  - DEPRESSION [None]
  - HAND FRACTURE [None]
  - HEART RATE INCREASED [None]
  - HOSTILITY [None]
  - HYPERTENSION [None]
  - INTENTIONAL SELF-INJURY [None]
  - PERSONALITY CHANGE [None]
  - SUICIDE ATTEMPT [None]
